FAERS Safety Report 8495704-8 (Version None)
Quarter: 2012Q3

REPORT INFORMATION
  Report Type: 
  Country: None (occurrence: None)
  Receive Date: 20120709
  Receipt Date: 20120703
  Transmission Date: 20120928
  Serious: No
  Sender: FDA-Public Use
  Company Number: US-PFIZER INC-2012161437

PATIENT
  Age: 31 Year
  Sex: Male

DRUGS (4)
  1. XANAX [Suspect]
     Indication: ANXIETY
     Dosage: UNK
  2. CELEXA [Suspect]
     Indication: PANIC ATTACK
  3. CELEXA [Suspect]
     Indication: ANXIETY
     Dosage: UNK
  4. XANAX [Suspect]
     Indication: PANIC ATTACK

REACTIONS (10)
  - DRUG WITHDRAWAL SYNDROME [None]
  - ALCOHOL PROBLEM [None]
  - DIZZINESS [None]
  - DEREALISATION [None]
  - SLOW RESPONSE TO STIMULI [None]
  - AFFECTIVE DISORDER [None]
  - PHOBIA [None]
  - THROAT TIGHTNESS [None]
  - ANXIETY [None]
  - LETHARGY [None]
